FAERS Safety Report 18323500 (Version 1)
Quarter: 2020Q3

REPORT INFORMATION
  Report Type: Spontaneous
  Country: US (occurrence: US)
  Receive Date: 20200929
  Receipt Date: 20200929
  Transmission Date: 20201103
  Serious: No
  Sender: FDA-Public Use
  Company Number: US-009507513-2009USA009787

PATIENT
  Age: 26 Year
  Sex: Female
  Weight: 48.07 kg

DRUGS (1)
  1. NEXPLANON [Suspect]
     Active Substance: ETONOGESTREL
     Dosage: 1 IMPLANT FOR THREE YEARS, IN RIGHT ARM
     Route: 059
     Dates: start: 2017

REACTIONS (3)
  - Incorrect product administration duration [Unknown]
  - Implant site fibrosis [Recovered/Resolved]
  - Complication of device removal [Not Recovered/Not Resolved]

NARRATIVE: CASE EVENT DATE: 2020
